FAERS Safety Report 5162106-1 (Version None)
Quarter: 2006Q4

REPORT INFORMATION
  Report Type: 
  Country: None (occurrence: None)
  Receive Date: 20061121
  Receipt Date: 20061106
  Transmission Date: 20070319
  Serious: Yes (Death, Hospitalization)
  Sender: FDA-Public Use
  Company Number: DSA_28951_2006

PATIENT
  Age: 76 Year
  Sex: Female

DRUGS (11)
  1. TAVOR [Suspect]
     Dosage: 5 MG Q DAY PO
     Route: 048
     Dates: end: 20060628
  2. TAVOR [Suspect]
     Dosage: 4 MG Q DAY PO
     Route: 048
     Dates: start: 20060629, end: 20060708
  3. SEROQUEL [Suspect]
     Dosage: 50 MG Q DAY PO
     Route: 048
     Dates: start: 20060629, end: 20060630
  4. SEROQUEL [Suspect]
     Dosage: 100 MG Q DAY PO
     Route: 048
     Dates: start: 20060701, end: 20060702
  5. SEROQUEL [Suspect]
     Dosage: 150 MG Q DAY PO
     Route: 048
     Dates: start: 20060703, end: 20060703
  6. SEROQUEL [Suspect]
     Dosage: 200 MG Q DAY PO
     Route: 048
     Dates: start: 20060704, end: 20060704
  7. SEROQUEL [Suspect]
     Dosage: 250 MG Q DAY PO
     Route: 048
     Dates: start: 20060705, end: 20060706
  8. SEROQUEL [Suspect]
     Dosage: 350 MG Q DAY PO
     Route: 048
     Dates: start: 20060707, end: 20060708
  9. STANGYL [Suspect]
     Dosage: 75 MG Q DAY PO
     Route: 048
     Dates: end: 20060708
  10. DURAGESIC-100 [Concomitant]
  11. TRILEPTAL [Concomitant]

REACTIONS (12)
  - BLOOD CREATININE INCREASED [None]
  - COMPUTERISED TOMOGRAM ABNORMAL [None]
  - DRUG INTERACTION [None]
  - ELECTROENCEPHALOGRAM ABNORMAL [None]
  - FALL [None]
  - HAEMORRHAGE [None]
  - HYPOXIC ENCEPHALOPATHY [None]
  - LUNG INFILTRATION [None]
  - MENTAL DISORDER [None]
  - PNEUMONIA [None]
  - RESPIRATORY ARREST [None]
  - WOUND HAEMORRHAGE [None]
